FAERS Safety Report 11846423 (Version 1)
Quarter: 2015Q4

REPORT INFORMATION
  Report Type: Report from Study
  Country: CA (occurrence: CA)
  Receive Date: 20151217
  Receipt Date: 20151217
  Transmission Date: 20160305
  Serious: Yes (Hospitalization, Other)
  Sender: FDA-Public Use
  Company Number: CA-AMGEN-CANSL2015133255

PATIENT
  Sex: Female

DRUGS (1)
  1. PROLIA [Suspect]
     Active Substance: DENOSUMAB
     Indication: PRODUCT USED FOR UNKNOWN INDICATION
     Dosage: 60 MG/ML, UNK
     Route: 065
     Dates: start: 20150512

REACTIONS (8)
  - Systemic lupus erythematosus [Unknown]
  - Connective tissue disorder [Unknown]
  - Drug dose omission [Unknown]
  - Raynaud^s phenomenon [Unknown]
  - Adverse event [Unknown]
  - Cystitis [Unknown]
  - Decreased immune responsiveness [Unknown]
  - Fibromyalgia [Unknown]

NARRATIVE: CASE EVENT DATE: 201505
